FAERS Safety Report 14146986 (Version 2)
Quarter: 2019Q4

REPORT INFORMATION
  Report Type: Spontaneous
  Country: US (occurrence: US)
  Receive Date: 20171031
  Receipt Date: 20191017
  Transmission Date: 20200122
  Serious: No
  Sender: FDA-Public Use
  Company Number: US-ROCHE-1989635

PATIENT
  Sex: Male

DRUGS (2)
  1. SUCRALFATE. [Concomitant]
     Active Substance: SUCRALFATE
  2. ESBRIET [Suspect]
     Active Substance: PIRFENIDONE
     Indication: PULMONARY FIBROSIS
     Dosage: 3 TAB BY MOUTH 3 TIMES A DAY WITH FOOD
     Route: 048
     Dates: start: 20170705

REACTIONS (3)
  - Diarrhoea [Not Recovered/Not Resolved]
  - Gastrooesophageal reflux disease [Recovered/Resolved]
  - Nausea [Recovered/Resolved]
